FAERS Safety Report 16077578 (Version 5)
Quarter: 2019Q2

REPORT INFORMATION
  Report Type: Report from Study
  Country: US (occurrence: US)
  Receive Date: 20190315
  Receipt Date: 20190605
  Transmission Date: 20190711
  Serious: Yes (Hospitalization)
  Sender: FDA-Public Use
  Company Number: US-TAIHO ONCOLOGY  INC-EU-2019-00500

PATIENT
  Age: 82 Year
  Sex: Male
  Weight: 83.99 kg

DRUGS (11)
  1. LONSURF [Suspect]
     Active Substance: TIPIRACIL HYDROCHLORIDE\TRIFLURIDINE
     Dosage: CYCLE 3
     Route: 048
     Dates: start: 201903
  2. ATORVASTATIN [Concomitant]
     Active Substance: ATORVASTATIN
     Dosage: AT BEDTIME
  3. LONSURF [Suspect]
     Active Substance: TIPIRACIL HYDROCHLORIDE\TRIFLURIDINE
     Indication: COLON CANCER METASTATIC
     Dosage: 15 MG TABLETS X 2.5?CYCLE 2 STARTED ON 08FEB2019
     Route: 048
     Dates: start: 20190110
  4. LONSURF [Suspect]
     Active Substance: TIPIRACIL HYDROCHLORIDE\TRIFLURIDINE
     Dosage: CURRENT CYCLE ENDED ON 19/APR/2019.  FREQUENCY:  DAYS 1-5 AND 8-12 Q28D CYCLE
     Route: 048
     Dates: start: 20190408
  5. LOSARTAN. [Concomitant]
     Active Substance: LOSARTAN
  6. PLAVIX [Concomitant]
     Active Substance: CLOPIDOGREL BISULFATE
  7. PREDNISONE. [Concomitant]
     Active Substance: PREDNISONE
  8. CARVEDILOL. [Concomitant]
     Active Substance: CARVEDILOL
  9. AMLODIPINE [Concomitant]
     Active Substance: AMLODIPINE BESYLATE
  10. TYLENOL [Concomitant]
     Active Substance: ACETAMINOPHEN
     Dosage: 2 BEFORE BED
  11. LOVASTATIN. [Concomitant]
     Active Substance: LOVASTATIN
     Dosage: NI

REACTIONS (9)
  - Infection [Unknown]
  - Dehydration [Unknown]
  - Fatigue [Not Recovered/Not Resolved]
  - Blood pressure increased [Unknown]
  - Blood potassium decreased [Unknown]
  - Musculoskeletal pain [Not Recovered/Not Resolved]
  - Incorrect dose administered [Unknown]
  - Diarrhoea [Not Recovered/Not Resolved]
  - Constipation [Not Recovered/Not Resolved]

NARRATIVE: CASE EVENT DATE: 2019
